FAERS Safety Report 4842290-7 (Version None)
Quarter: 2005Q4

REPORT INFORMATION
  Report Type: 
  Country: None (occurrence: None)
  Receive Date: 20051129
  Receipt Date: 20051118
  Transmission Date: 20060501
  Serious: Yes (Death)
  Sender: FDA-Public Use
  Company Number: 200513973GDS

PATIENT
  Age: 34 Year
  Sex: Female

DRUGS (11)
  1. CIPRO [Suspect]
     Dosage: 400 MG, TOTAL DAILY, INTRAVENOUS
     Route: 042
  2. MIVACRON [Suspect]
     Dosage: 16 MG, TOTAL DAILY, INTRAVENOUS
     Route: 042
  3. EPOGEN [Concomitant]
  4. FENTANYL [Concomitant]
  5. IRBESARTAN [Concomitant]
  6. IRON [Concomitant]
  7. NIFEDIPINE [Concomitant]
  8. PRAMIPEXOLE [Concomitant]
  9. PROPOFOL [Concomitant]
  10. TUMS [Concomitant]
  11. CALCITRIOL [Concomitant]

REACTIONS (5)
  - ANAPHYLACTIC REACTION [None]
  - ANOXIA [None]
  - ENCEPHALOPATHY ALLERGIC [None]
  - HYPOTENSION [None]
  - RESPIRATORY ARREST [None]
